FAERS Safety Report 10280436 (Version 2)
Quarter: 2015Q2

REPORT INFORMATION
  Report Type: Spontaneous
  Country: US (occurrence: None)
  Receive Date: 20140702
  Receipt Date: 20150423
  Transmission Date: 20150821
  Serious: Yes (Other)
  Sender: FDA-Public Use
  Company Number: FK201402541

PATIENT
  Age: 39 Year
  Sex: Female

DRUGS (4)
  1. ETODOLAC (ETODOLAC) [Concomitant]
     Active Substance: ETODOLAC
  2. TRAMADOL(TRAMADOL) [Concomitant]
     Active Substance: TRAMADOL
  3. METHOTREXATE INJECTION [Suspect]
     Active Substance: METHOTREXATE
     Indication: RHEUMATOID ARTHRITIS
     Route: 058
     Dates: start: 201401, end: 20140613
  4. FOLIC ACID (FOLIC ACID) [Concomitant]
     Active Substance: FOLIC ACID

REACTIONS (5)
  - Pain [None]
  - Movement disorder [None]
  - Drug ineffective [None]
  - Drug level decreased [None]
  - Swelling [None]
